FAERS Safety Report 4421739-8 (Version None)
Quarter: 2004Q3

REPORT INFORMATION
  Report Type: 
  Country: None (occurrence: None)
  Receive Date: 20040806
  Receipt Date: 20040719
  Transmission Date: 20050211
  Serious: Yes (Other)
  Sender: FDA-Public Use
  Company Number: USA040772907

PATIENT
  Age: 39 Year
  Sex: Female
  Weight: 106 kg

DRUGS (4)
  1. HUMULIN R [Suspect]
     Indication: DIABETES MELLITUS
     Dates: start: 19940101
  2. PREDNISONE [Concomitant]
  3. PERCOCET [Concomitant]
  4. OXYCONTIN [Concomitant]

REACTIONS (21)
  - ARTHRITIS [None]
  - BLOOD GLUCOSE INCREASED [None]
  - CARDIAC DISORDER [None]
  - CARTILAGE INJURY [None]
  - CHONDROPATHY [None]
  - CHRONIC OBSTRUCTIVE AIRWAYS DISEASE [None]
  - DEHYDRATION [None]
  - DIABETIC KETOACIDOSIS [None]
  - DIABETIC NEUROPATHY [None]
  - DIARRHOEA [None]
  - GLAUCOMA [None]
  - HAEMOPTYSIS [None]
  - IMPAIRED GASTRIC EMPTYING [None]
  - INJECTION SITE URTICARIA [None]
  - LOSS OF CONSCIOUSNESS [None]
  - NASOPHARYNGITIS [None]
  - OVERDOSE [None]
  - PHARMACEUTICAL PRODUCT COMPLAINT [None]
  - PRURITUS [None]
  - TREMOR [None]
  - WEIGHT DECREASED [None]
